FAERS Safety Report 21784491 (Version 3)
Quarter: 2023Q1

REPORT INFORMATION
  Report Type: Spontaneous
  Country: US (occurrence: US)
  Receive Date: 20221227
  Receipt Date: 20230209
  Transmission Date: 20230418
  Serious: Yes (Other)
  Sender: FDA-Public Use
  Company Number: US-PFIZER INC-2020377643

PATIENT
  Age: 82 Year
  Sex: Female
  Weight: 67.13 kg

DRUGS (4)
  1. VYNDAMAX [Suspect]
     Active Substance: TAFAMIDIS
     Indication: Cardiac disorder
     Dosage: 61 MG, 1X/DAY
     Route: 048
     Dates: start: 2016, end: 20221219
  2. VYNDAMAX [Suspect]
     Active Substance: TAFAMIDIS
     Indication: Amyloidosis
     Dosage: 20MG, 4 CAPSULES ONCE DAILY BY MOUTH
     Route: 048
     Dates: start: 2019
  3. VYNDAMAX [Suspect]
     Active Substance: TAFAMIDIS
     Indication: Cardiac amyloidosis
     Dosage: 61 MG
  4. BUMETANIDE [Concomitant]
     Active Substance: BUMETANIDE
     Dosage: 1 MG, 2X/DAY

REACTIONS (3)
  - Blindness [Unknown]
  - Product prescribing error [Unknown]
  - Expired product administered [Unknown]

NARRATIVE: CASE EVENT DATE: 20190101
